FAERS Safety Report 21131369 (Version 1)
Quarter: 2022Q3

REPORT INFORMATION
  Report Type: Spontaneous
  Country: FR (occurrence: FR)
  Receive Date: 20220726
  Receipt Date: 20220726
  Transmission Date: 20221026
  Serious: Yes (Death)
  Sender: FDA-Public Use
  Company Number: None

PATIENT
  Age: 54 Year
  Sex: Male

DRUGS (3)
  1. CARBOPLATIN [Suspect]
     Active Substance: CARBOPLATIN
     Indication: Adenocarcinoma
     Dates: start: 20210430, end: 20210430
  2. NEURONTIN [Suspect]
     Active Substance: GABAPENTIN
     Indication: Pain
     Dates: start: 20210430, end: 20210510
  3. TAXOL [Suspect]
     Active Substance: PACLITAXEL
     Indication: Adenocarcinoma
     Dates: start: 20210430, end: 20210430

REACTIONS (1)
  - Pancytopenia [Fatal]

NARRATIVE: CASE EVENT DATE: 20210507
